FAERS Safety Report 9755911 (Version 1)
Quarter: 2013Q4

REPORT INFORMATION
  Report Type: Spontaneous
  Country: FR (occurrence: FR)
  Receive Date: 20131213
  Receipt Date: 20131213
  Transmission Date: 20140711
  Serious: Yes (Hospitalization)
  Sender: FDA-Public Use
  Company Number: FR-BRISTOL-MYERS SQUIBB COMPANY-19888262

PATIENT
  Age: 74 Year
  Sex: Male

DRUGS (6)
  1. HYDREA CAPS 500 MG [Suspect]
     Indication: CHRONIC MYELOMONOCYTIC LEUKAEMIA
     Route: 048
  2. SODIC HEPARIN [Suspect]
     Indication: PULMONARY EMBOLISM
     Dosage: 1DF:25,000 IU/5ML
     Route: 058
     Dates: start: 20130824, end: 20130829
  3. PREVISCAN [Suspect]
     Indication: PULMONARY EMBOLISM
     Route: 048
     Dates: start: 20130825, end: 20130901
  4. ORGARAN [Suspect]
  5. LEVOTHYROX [Concomitant]
  6. KARDEGIC [Concomitant]

REACTIONS (3)
  - Thrombocytopenia [Recovered/Resolved]
  - Sepsis [Unknown]
  - Haematoma [Unknown]
